FAERS Safety Report 7670010-X (Version None)
Quarter: 2011Q3

REPORT INFORMATION
  Report Type: 
  Country: None (occurrence: None)
  Receive Date: 20110808
  Receipt Date: 20110802
  Transmission Date: 20111222
  Serious: Yes (Other)
  Sender: FDA-Public Use
  Company Number: US-ABBOTT-11P-163-0843772-00

PATIENT
  Sex: Female

DRUGS (2)
  1. HUMIRA [Suspect]
     Indication: COLITIS ULCERATIVE
     Route: 058
     Dates: start: 20091001, end: 20100201
  2. REMICADE [Suspect]
     Indication: COLITIS ULCERATIVE
     Dates: end: 20090901

REACTIONS (4)
  - EOSINOPHIL COUNT INCREASED [None]
  - NAUSEA [None]
  - GASTROENTERITIS [None]
  - HYPEREOSINOPHILIC SYNDROME [None]
